FAERS Safety Report 7134380-3 (Version None)
Quarter: 2010Q4

REPORT INFORMATION
  Report Type: 
  Country: None (occurrence: None)
  Receive Date: 20101203
  Receipt Date: 20101119
  Transmission Date: 20110411
  Serious: Yes (Other)
  Sender: FDA-Public Use
  Company Number: CH-ELI_LILLY_AND_COMPANY-CH201011006768

PATIENT
  Age: 55 Year
  Sex: Male
  Weight: 79 kg

DRUGS (3)
  1. CYMBALTA [Suspect]
     Indication: DEPRESSION
     Dosage: 30 MG, DAILY (1/D)
     Route: 048
     Dates: start: 20101018
  2. REMERON [Concomitant]
     Indication: DEPRESSION
     Dosage: 45 MG, DAILY (1/D)
     Route: 048
     Dates: start: 20100501
  3. EZETROL [Concomitant]
     Indication: HYPERCHOLESTEROLAEMIA
     Dosage: 10 MG, DAILY (1/D)
     Route: 048
     Dates: start: 20100501, end: 20101115

REACTIONS (1)
  - BLOOD CREATINE PHOSPHOKINASE INCREASED [None]
